FAERS Safety Report 6463956-1 (Version None)
Quarter: 2009Q4

REPORT INFORMATION
  Report Type: 
  Country: None (occurrence: None)
  Receive Date: 20091201
  Receipt Date: 20091117
  Transmission Date: 20100525
  Serious: Yes (Congenital Anomaly, Other)
  Sender: FDA-Public Use
  Company Number: FR-JNJFOC-20091105534

PATIENT
  Sex: Female

DRUGS (7)
  1. GYNO DAKTARIN [Suspect]
     Route: 065
  2. GYNO DAKTARIN [Suspect]
     Indication: DRUG USE FOR UNKNOWN INDICATION
     Route: 065
  3. GENTALLINE [Suspect]
     Indication: DRUG USE FOR UNKNOWN INDICATION
  4. FURADANTIN [Suspect]
     Indication: DRUG USE FOR UNKNOWN INDICATION
  5. AMYCOR [Suspect]
     Indication: DRUG USE FOR UNKNOWN INDICATION
  6. COLIBACILLINUM [Concomitant]
  7. CRANBERRY EXTRACT [Concomitant]

REACTIONS (5)
  - AMNIOTIC CAVITY DISORDER [None]
  - AMNIOTIC FLUID VOLUME DECREASED [None]
  - DRUG EXPOSURE DURING PREGNANCY [None]
  - HAEMATOMA [None]
  - METRORRHAGIA [None]
